FAERS Safety Report 23680754 (Version 1)
Quarter: 2024Q1

REPORT INFORMATION
  Report Type: Spontaneous
  Country: US (occurrence: US)
  Receive Date: 20240328
  Receipt Date: 20240328
  Transmission Date: 20240409
  Serious: No
  Sender: FDA-Public Use
  Company Number: US-TEVA-VS-3154489

PATIENT
  Sex: Female

DRUGS (1)
  1. SCOPOLAMINE [Suspect]
     Active Substance: SCOPOLAMINE
     Indication: Product used for unknown indication
     Dosage: 1 MG/72HR
     Route: 065

REACTIONS (3)
  - Mydriasis [Unknown]
  - Vision blurred [Unknown]
  - Fear [Unknown]

NARRATIVE: CASE EVENT DATE: 20240201
